FAERS Safety Report 7345510-2 (Version None)
Quarter: 2011Q1

REPORT INFORMATION
  Report Type: 
  Country: None (occurrence: None)
  Receive Date: 20110310
  Receipt Date: 20110309
  Transmission Date: 20110831
  Serious: Yes (Death, Life-Threatening, Hospitalization, Other)
  Sender: FDA-Public Use
  Company Number: MX-ABBOTT-11P-107-0709246-00

PATIENT
  Sex: Male

DRUGS (5)
  1. KALETRA [Suspect]
     Indication: ACQUIRED IMMUNODEFICIENCY SYNDROME
     Dosage: EVERY 12 HOURS, 400/100MG DAILY
     Route: 048
     Dates: start: 20110124, end: 20110217
  2. TRUVADA [Suspect]
     Indication: ACQUIRED IMMUNODEFICIENCY SYNDROME
     Dosage: 200/300MG DAILY
     Route: 048
     Dates: start: 20110124, end: 20110217
  3. TRIMETHROPRIM/SULFAMETHOXAZOLE [Concomitant]
     Indication: PROPHYLAXIS
     Route: 048
     Dates: start: 20110124, end: 20110217
  4. CAPTOPRIL [Concomitant]
     Indication: HYPERTENSION
     Route: 048
     Dates: end: 20110217
  5. FERROUS SULFATE TAB [Concomitant]
     Indication: ANAEMIA
     Route: 048
     Dates: start: 20110124, end: 20110217

REACTIONS (6)
  - KUSSMAUL RESPIRATION [None]
  - RENAL FAILURE ACUTE [None]
  - ASTHENIA [None]
  - PANCREATITIS [None]
  - PALLOR [None]
  - ANAEMIA [None]
